FAERS Safety Report 13824835 (Version 2)
Quarter: 2017Q4

REPORT INFORMATION
  Report Type: Spontaneous
  Country: JP (occurrence: JP)
  Receive Date: 20170802
  Receipt Date: 20171208
  Transmission Date: 20180320
  Serious: Yes (Hospitalization)
  Sender: FDA-Public Use
  Company Number: JP-RECORDATI RARE DISEASES-JP-R13005-17-00150

PATIENT
  Age: 2 Day
  Sex: Male
  Weight: 1.65 kg

DRUGS (1)
  1. INDOCIN [Suspect]
     Active Substance: INDOMETHACIN
     Indication: PATENT DUCTUS ARTERIOSUS
     Route: 042
     Dates: start: 20161022, end: 20161023

REACTIONS (3)
  - Renal impairment [Unknown]
  - Condition aggravated [Recovering/Resolving]
  - Intestinal atresia [Recovering/Resolving]

NARRATIVE: CASE EVENT DATE: 20161023
